FAERS Safety Report 16294118 (Version 1)
Quarter: 2019Q2

REPORT INFORMATION
  Report Type: Spontaneous
  Country: US (occurrence: US)
  Receive Date: 20190509
  Receipt Date: 20190509
  Transmission Date: 20190711
  Serious: No
  Sender: FDA-Public Use
  Company Number: US-ROCHE-2149267

PATIENT
  Sex: Female

DRUGS (2)
  1. ESBRIET [Suspect]
     Active Substance: PIRFENIDONE
     Indication: IDIOPATHIC PULMONARY FIBROSIS
     Dosage: ONGOING:YES
     Route: 065
     Dates: start: 2014
  2. OXYGEN. [Concomitant]
     Active Substance: OXYGEN
     Dosage: SUPPOSED TO USE 24 HOURS ;ONGOING: YES
     Route: 065

REACTIONS (3)
  - Dyspnoea [Recovered/Resolved with Sequelae]
  - General physical health deterioration [Not Recovered/Not Resolved]
  - Feeling abnormal [Recovered/Resolved with Sequelae]
